FAERS Safety Report 4981064-3 (Version None)
Quarter: 2006Q2

REPORT INFORMATION
  Report Type: 
  Country: None (occurrence: None)
  Receive Date: 20060421
  Receipt Date: 20060410
  Transmission Date: 20061013
  Serious: Yes (Other)
  Sender: FDA-Public Use
  Company Number: 200611547BCC

PATIENT
  Age: 67 Year
  Sex: Male
  Weight: 78.9259 kg

DRUGS (6)
  1. ALEVE [Suspect]
     Indication: ARTHRALGIA
     Dosage: 220 MG, BID, ORAL
     Route: 048
     Dates: start: 20060401
  2. FLUDROCORT [Concomitant]
  3. NIASPAN [Concomitant]
  4. GLUCOSAMINE W/CHONDROITIN SULFATES [Concomitant]
  5. WALGREENS MULTIVITAMIN [Concomitant]
  6. LORATADINE [Concomitant]

REACTIONS (2)
  - CONTUSION [None]
  - MULTIPLE SYSTEM ATROPHY [None]
